FAERS Safety Report 12325120 (Version 3)
Quarter: 2016Q3

REPORT INFORMATION
  Report Type: Report from Study
  Country: US (occurrence: US)
  Receive Date: 20160502
  Receipt Date: 20160901
  Transmission Date: 20161109
  Serious: Yes (Hospitalization, Other)
  Sender: FDA-Public Use
  Company Number: PHEH2016US010353

PATIENT
  Age: 5 Year
  Sex: Female
  Weight: 20 kg

DRUGS (4)
  1. METHOTREXATE. [Concomitant]
     Active Substance: METHOTREXATE
     Indication: PRODUCT USED FOR UNKNOWN INDICATION
     Dosage: UNK
     Route: 065
     Dates: start: 201509, end: 201607
  2. ILARIS [Suspect]
     Active Substance: CANAKINUMAB
     Dosage: 8 MG/KG, MONTHLY
     Route: 058
     Dates: start: 20160110, end: 20160609
  3. CANAKINUMAB [Concomitant]
     Active Substance: CANAKINUMAB
     Indication: PRODUCT USED FOR UNKNOWN INDICATION
     Dosage: UNK
     Route: 065
  4. ILARIS [Suspect]
     Active Substance: CANAKINUMAB
     Indication: JUVENILE IDIOPATHIC ARTHRITIS
     Dosage: 150 MG, EVERY 28 DAYS
     Route: 058

REACTIONS (9)
  - Serum ferritin increased [Unknown]
  - Transaminases increased [Unknown]
  - Gastroenteritis [Unknown]
  - Injection site erosion [Unknown]
  - Pyrexia [Unknown]
  - Hypotension [Unknown]
  - Hepatomegaly [Unknown]
  - Drug ineffective [Unknown]
  - Histiocytosis haematophagic [Recovered/Resolved]

NARRATIVE: CASE EVENT DATE: 20160609
